FAERS Safety Report 5851887-7 (Version None)
Quarter: 2008Q3

REPORT INFORMATION
  Report Type: 
  Country: None (occurrence: None)
  Receive Date: 20080820
  Receipt Date: 20080813
  Transmission Date: 20090109
  Serious: Yes (Other)
  Sender: FDA-Public Use
  Company Number: US-PFIZER INC-2008065357

PATIENT
  Sex: Male
  Weight: 37.2 kg

DRUGS (9)
  1. ACCUPRIL [Suspect]
     Indication: HYPERTENSION
  2. GLUCOPHAGE [Concomitant]
  3. ALLEGRA [Concomitant]
  4. NASACORT [Concomitant]
  5. SYMBICORT [Concomitant]
  6. MULTI-VITAMINS [Concomitant]
  7. NIASPAN [Concomitant]
  8. LIPITOR [Concomitant]
  9. PLAVIX [Concomitant]

REACTIONS (2)
  - HYPERTENSION [None]
  - MYOCARDIAL INFARCTION [None]
